FAERS Safety Report 6732898-6 (Version None)
Quarter: 2010Q2

REPORT INFORMATION
  Report Type: 
  Country: None (occurrence: None)
  Receive Date: 20100517
  Receipt Date: 20100504
  Transmission Date: 20101027
  Serious: Yes (Other)
  Sender: FDA-Public Use
  Company Number: 2010SP019597

PATIENT
  Age: 33 Year
  Sex: Female

DRUGS (1)
  1. IMPLANON [Suspect]
     Indication: DRUG USE FOR UNKNOWN INDICATION
     Dosage: 1DF
     Dates: start: 20100222, end: 20100326

REACTIONS (2)
  - COMPLICATION OF DEVICE INSERTION [None]
  - STAPHYLOCOCCAL ABSCESS [None]
